FAERS Safety Report 26103414 (Version 1)
Quarter: 2025Q4

REPORT INFORMATION
  Report Type: Report from Study
  Country: CO (occurrence: CO)
  Receive Date: 20251129
  Receipt Date: 20251129
  Transmission Date: 20260118
  Serious: Yes (Death, Life-Threatening, Other)
  Sender: UNITED THERAPEUTICS
  Company Number: CO-UNITED THERAPEUTICS-UNT-2025-040532

PATIENT
  Age: 12 Year
  Sex: Female
  Weight: 20 kg

DRUGS (2)
  1. TREPROSTINIL SODIUM [Suspect]
     Active Substance: TREPROSTINIL SODIUM
     Indication: Pulmonary hypertension
     Dosage: 0.024 ?G/KG (AT THE INFUSION RATE OF 0.029 CC/HOUR), CONTINUING
  2. TREPROSTINIL SODIUM [Suspect]
     Active Substance: TREPROSTINIL SODIUM
     Dosage: UNK, CONTINUING

REACTIONS (3)
  - Hypovolaemic shock [Fatal]
  - Cardiac arrest [Fatal]
  - Haemorrhage [Unknown]
